FAERS Safety Report 5061346-X (Version None)
Quarter: 2006Q3

REPORT INFORMATION
  Report Type: 
  Country: None (occurrence: None)
  Receive Date: 20060725
  Receipt Date: 20060712
  Transmission Date: 20061208
  Serious: Yes (Life-Threatening)
  Sender: FDA-Public Use
  Company Number: FR-NOVOPROD-254881

PATIENT
  Age: 85 Year
  Sex: Male

DRUGS (5)
  1. ANTITHROMBOTIC AGENTS [Concomitant]
  2. NOVOSEVEN [Suspect]
     Indication: ACQUIRED HAEMOPHILIA
     Dosage: 1 MG, UNK
  3. FEIBA                              /00286701/ [Concomitant]
  4. RITUXIMAB [Concomitant]
  5. IMMUNOSUPPRESSIVE AGENTS [Concomitant]

REACTIONS (1)
  - MYOCARDIAL INFARCTION [None]
